FAERS Safety Report 4608777-7 (Version None)
Quarter: 2005Q1

REPORT INFORMATION
  Report Type: 
  Country: None (occurrence: None)
  Receive Date: 20050315
  Receipt Date: 20050308
  Transmission Date: 20050727
  Serious: Yes (Death)
  Sender: FDA-Public Use
  Company Number: JP-JNJFOC-20050302620

PATIENT
  Age: 65 Year
  Sex: Male

DRUGS (2)
  1. FENTANYL [Suspect]
     Indication: CANCER PAIN
     Route: 062
  2. MIXED AMINO ACID, CARBOHYDRATE, ELECTROLYTE, VITAMIN COMBINED DRUG [Concomitant]
     Route: 041

REACTIONS (1)
  - RESPIRATORY DEPRESSION [None]
